FAERS Safety Report 6579263-2 (Version None)
Quarter: 2010Q1

REPORT INFORMATION
  Report Type: 
  Country: None (occurrence: None)
  Receive Date: 20100212
  Receipt Date: 20100204
  Transmission Date: 20100710
  Serious: Yes (Life-Threatening, Hospitalization, Other)
  Sender: FDA-Public Use
  Company Number: US-JNJFOC-20100203837

PATIENT
  Sex: Female
  Weight: 58.97 kg

DRUGS (2)
  1. REMICADE [Suspect]
     Indication: CROHN'S DISEASE
     Route: 042
  2. REMICADE [Suspect]
     Route: 042

REACTIONS (7)
  - CARDIAC DISORDER [None]
  - DYSPNOEA [None]
  - LIVER INJURY [None]
  - LUNG DISORDER [None]
  - LUPUS-LIKE SYNDROME [None]
  - MUSCULAR WEAKNESS [None]
  - RENAL INJURY [None]
